FAERS Safety Report 5214244-2 (Version None)
Quarter: 2007Q1

REPORT INFORMATION
  Report Type: 
  Country: None (occurrence: None)
  Receive Date: 20070117
  Receipt Date: 20070105
  Transmission Date: 20070707
  Serious: Yes (Hospitalization)
  Sender: FDA-Public Use
  Company Number: 2007BI000347

PATIENT
  Sex: Female
  Weight: 95.2554 kg

DRUGS (4)
  1. AVONEX [Suspect]
     Indication: MULTIPLE SCLEROSIS
     Dosage: 30 UG; QW; IM
     Route: 030
     Dates: start: 20050201
  2. ASACOL [Concomitant]
  3. LOMOTIL [Concomitant]
  4. FOLIC ACID [Concomitant]

REACTIONS (6)
  - ABDOMINAL ABSCESS [None]
  - ABDOMINAL HERNIA [None]
  - HERNIA [None]
  - MUSCLE DISORDER [None]
  - MUSCULAR WEAKNESS [None]
  - PAIN [None]
